FAERS Safety Report 6774006-1 (Version None)
Quarter: 2010Q2

REPORT INFORMATION
  Report Type: 
  Country: None (occurrence: None)
  Receive Date: 20100615
  Receipt Date: 20100615
  Transmission Date: 20101027
  Serious: No
  Sender: FDA-Public Use
  Company Number: None

PATIENT
  Age: 26 Year
  Sex: Male
  Weight: 109.7705 kg

DRUGS (1)
  1. CIPROFLOXACIN [Suspect]
     Indication: PROSTATE INFECTION
     Dosage: BID PO
     Route: 048
     Dates: start: 20090801, end: 20090801

REACTIONS (9)
  - EYE DISORDER [None]
  - HEADACHE [None]
  - HERPES ZOSTER [None]
  - PAIN OF SKIN [None]
  - PHOTOPSIA [None]
  - TENDON PAIN [None]
  - TINNITUS [None]
  - VISUAL ACUITY REDUCED TRANSIENTLY [None]
  - VISUAL IMPAIRMENT [None]
